FAERS Safety Report 23685675 (Version 1)
Quarter: 2024Q1

REPORT INFORMATION
  Report Type: Spontaneous
  Country: KR (occurrence: None)
  Receive Date: 20240329
  Receipt Date: 20240329
  Transmission Date: 20240410
  Serious: Yes (Other)
  Sender: FDA-Public Use
  Company Number: 2024A069697

PATIENT
  Sex: Female

DRUGS (1)
  1. QTERN [Suspect]
     Active Substance: DAPAGLIFLOZIN\SAXAGLIPTIN HYDROCHLORIDE
     Route: 048

REACTIONS (4)
  - Urine analysis abnormal [Unknown]
  - Hyperthyroidism [Unknown]
  - Weight decreased [Unknown]
  - Fatigue [Unknown]
